FAERS Safety Report 16821526 (Version 5)
Quarter: 2020Q2

REPORT INFORMATION
  Report Type: Spontaneous
  Country: US (occurrence: US)
  Receive Date: 20190918
  Receipt Date: 20200610
  Transmission Date: 20200713
  Serious: Yes (Other)
  Sender: FDA-Public Use
  Company Number: US-PFIZER INC-2019395738

PATIENT
  Age: 73 Year
  Sex: Female

DRUGS (1)
  1. DETROL LA [Suspect]
     Active Substance: TOLTERODINE TARTRATE
     Indication: ESSENTIAL HYPERTENSION
     Dosage: 4 MG, 1X/DAY (1 TIME PER DAY)
     Route: 048

REACTIONS (3)
  - Product use in unapproved indication [Unknown]
  - Neoplasm malignant [Unknown]
  - Off label use [Unknown]
